FAERS Safety Report 20534292 (Version 1)
Quarter: 2022Q1

REPORT INFORMATION
  Report Type: Spontaneous
  Country: GB (occurrence: GB)
  Receive Date: 20220301
  Receipt Date: 20220301
  Transmission Date: 20220423
  Serious: Yes (Hospitalization)
  Sender: FDA-Public Use
  Company Number: GB-MHRA-MED-202202191620541580-U5SXS

PATIENT
  Age: 59 Year
  Sex: Female
  Weight: 58 kg

DRUGS (1)
  1. METRONIDAZOLE [Suspect]
     Active Substance: METRONIDAZOLE
     Indication: Dental cyst
     Dosage: UNK (1X3 A DAY)
     Route: 065
     Dates: start: 20220202, end: 20220204

REACTIONS (5)
  - Vomiting [Recovered/Resolved]
  - Photosensitivity reaction [Recovered/Resolved]
  - Rash erythematous [Recovered/Resolved]
  - Pharyngeal swelling [Recovered/Resolved]
  - Somnolence [Recovered/Resolved]

NARRATIVE: CASE EVENT DATE: 20220203
